FAERS Safety Report 24270957 (Version 1)
Quarter: 2024Q3

REPORT INFORMATION
  Report Type: Spontaneous
  Country: CA (occurrence: CA)
  Receive Date: 20240831
  Receipt Date: 20240831
  Transmission Date: 20241016
  Serious: Yes (Other)
  Sender: AUROBINDO
  Company Number: CA-AUROBINDO-AUR-APL-2024-042955

PATIENT
  Age: 81 Year
  Sex: Female

DRUGS (2)
  1. PRAMIPEXOLE [Suspect]
     Active Substance: PRAMIPEXOLE\PRAMIPEXOLE DIHYDROCHLORIDE
     Indication: Restless legs syndrome
     Dosage: 0.25 MILLIGRAM, TWO TIMES A DAY
     Route: 048
  2. PRAMIPEXOLE DIHYDROCHLORIDE [Suspect]
     Active Substance: PRAMIPEXOLE DIHYDROCHLORIDE
     Indication: Product used for unknown indication
     Dosage: 0.25 MILLIGRAM, TWO TIMES A DAY
     Route: 048

REACTIONS (1)
  - Seizure [Recovered/Resolved]
